FAERS Safety Report 4527134-5 (Version None)
Quarter: 2004Q4

REPORT INFORMATION
  Report Type: 
  Country: None (occurrence: None)
  Receive Date: 20041202
  Receipt Date: 20040719
  Transmission Date: 20050328
  Serious: Yes (Other)
  Sender: FDA-Public Use
  Company Number: 20040700342

PATIENT
  Age: 24 Month
  Sex: Male
  Weight: 10.9 kg

DRUGS (1)
  1. PHENERGAN [Suspect]
     Indication: VOMITING
     Dosage: 12.5 MG ONCE IM
     Route: 030
     Dates: start: 20040102, end: 20040102

REACTIONS (1)
  - INJECTION SITE NECROSIS [None]
